FAERS Safety Report 7164357-3 (Version None)
Quarter: 2010Q4

REPORT INFORMATION
  Report Type: 
  Country: None (occurrence: None)
  Receive Date: 20101215
  Receipt Date: 20101206
  Transmission Date: 20110411
  Serious: Yes (Disabling)
  Sender: FDA-Public Use
  Company Number: JP-ASTRAZENECA-2010SE56315

PATIENT
  Age: 18406 Day
  Sex: Female
  Weight: 46 kg

DRUGS (8)
  1. SEROQUEL [Suspect]
     Indication: DEPRESSION
     Dosage: 25-200 MG DAILY
     Route: 048
     Dates: start: 20070412, end: 20080604
  2. ZYPREXA [Suspect]
     Indication: DEPRESSION
     Dosage: 2.5-5 MG DAILY
     Route: 048
     Dates: start: 20070823, end: 20080529
  3. AMOXAN [Suspect]
     Indication: DEPRESSION
     Dosage: 75-150 MG DAILY
     Route: 048
     Dates: start: 20060721, end: 20080523
  4. PAXIL [Suspect]
     Indication: DEPRESSION
     Dosage: 10-40 MG DAILY
     Route: 048
     Dates: start: 20061003, end: 20080111
  5. LEXOTAN [Suspect]
     Indication: DEPRESSION
     Route: 048
     Dates: start: 20060721, end: 20080604
  6. TOLEDOMIN [Suspect]
     Indication: DEPRESSION
     Dosage: 50-150 MG DAILY
     Route: 048
     Dates: start: 20070426, end: 20080604
  7. DESYREL [Suspect]
     Indication: DEPRESSION
     Dosage: 25-50 MG DAILY
     Route: 048
     Dates: start: 20061121, end: 20080604
  8. ZYPREXA ZYDIS [Suspect]
     Indication: DEPRESSION
     Route: 048
     Dates: start: 20071011, end: 20080407

REACTIONS (2)
  - AMNESTIC DISORDER [None]
  - HYPERGLYCAEMIA [None]
